FAERS Safety Report 8573333-5 (Version None)
Quarter: 2012Q2

REPORT INFORMATION
  Report Type: 
  Country: None (occurrence: None)
  Receive Date: 20120418
  Receipt Date: 20080317
  Transmission Date: 20120825
  Serious: Yes (Other)
  Sender: FDA-Public Use
  Company Number: PHEH2008US02623

PATIENT
  Age: 41 Year
  Sex: Female

DRUGS (1)
  1. DIOVAN HCT [Suspect]
     Dosage: ONE HALF A 160/12.5 MG TABLET DAILY
     Dates: start: 20080311

REACTIONS (1)
  - BLOOD PRESSURE DECREASED [None]
